FAERS Safety Report 5014004-1 (Version None)
Quarter: 2006Q2

REPORT INFORMATION
  Report Type: 
  Country: None (occurrence: None)
  Receive Date: 20060526
  Receipt Date: 20060526
  Transmission Date: 20061013
  Serious: Yes (Death, Hospitalization)
  Sender: FDA-Public Use
  Company Number: None

PATIENT
  Age: 57 Year
  Sex: Male
  Weight: 88.1 kg

DRUGS (4)
  1. RITUXIMAB [Suspect]
     Indication: MULTIPLE MYELOMA
     Dosage: 540 MG DAY-22+DAY 14 IV
     Route: 042
     Dates: start: 20060314
  2. RITUXIMAB [Suspect]
     Indication: MULTIPLE MYELOMA
     Dosage: 540 MG DAY-22+DAY 14 IV
     Route: 042
     Dates: start: 20060322
  3. IN2B8  , 1/2  B 8  CYCLE 1 [Suspect]
  4. . [Concomitant]

REACTIONS (9)
  - ACUTE RESPIRATORY DISTRESS SYNDROME [None]
  - DEHYDRATION [None]
  - HYPOTENSION [None]
  - NEUTROPENIA [None]
  - PNEUMONITIS [None]
  - PYREXIA [None]
  - RENAL FAILURE ACUTE [None]
  - RESPIRATORY DISORDER [None]
  - SEPSIS [None]
